FAERS Safety Report 21280453 (Version 2)
Quarter: 2022Q4

REPORT INFORMATION
  Report Type: Spontaneous
  Country: US (occurrence: US)
  Receive Date: 20220901
  Receipt Date: 20221206
  Transmission Date: 20230112
  Serious: No
  Sender: FDA-Public Use
  Company Number: US-PFIZER INC-PV202200052499

PATIENT
  Age: 55 Year
  Sex: Female

DRUGS (3)
  1. IBRANCE [Suspect]
     Active Substance: PALBOCICLIB
     Indication: Breast cancer female
     Dosage: 1 TABLET DAILY FOR 21 DAYS TAKEN WITH OR WITHOUT FOOD 1-21 EVERY 28 DAYS
     Route: 048
     Dates: start: 20220816
  2. IBRANCE [Suspect]
     Active Substance: PALBOCICLIB
     Dosage: TAKE 1 TABLET, DAILY ON DAYS 1-21 EVERY 28 DAYS. CAN BE TAKEN WITH OR WITHOUT FOOD
     Route: 048
     Dates: start: 20220924
  3. IBRANCE [Suspect]
     Active Substance: PALBOCICLIB
     Dosage: 75 MG, CYCLIC

REACTIONS (2)
  - Fatigue [Unknown]
  - White blood cell count decreased [Unknown]
